FAERS Safety Report 22776246 (Version 4)
Quarter: 2023Q4

REPORT INFORMATION
  Report Type: Report from Study
  Country: US (occurrence: US)
  Receive Date: 20230802
  Receipt Date: 20231108
  Transmission Date: 20240110
  Serious: Yes (Other)
  Sender: FDA-Public Use
  Company Number: US-ABBVIE-5350206

PATIENT
  Age: 77 Year
  Sex: Male
  Weight: 112 kg

DRUGS (2)
  1. IMBRUVICA [Suspect]
     Active Substance: IBRUTINIB
     Indication: Chronic lymphocytic leukaemia
     Route: 048
     Dates: start: 20190119
  2. IMBRUVICA [Suspect]
     Active Substance: IBRUTINIB
     Indication: Chronic lymphocytic leukaemia
     Dosage: LAST ADMIN DATE- JAN 2019
     Route: 048
     Dates: start: 20190115

REACTIONS (15)
  - Sinus arrest [Not Recovered/Not Resolved]
  - Arrhythmia [Not Recovered/Not Resolved]
  - Skin abrasion [Unknown]
  - Chronic obstructive pulmonary disease [Not Recovered/Not Resolved]
  - Cardiac arrest [Not Recovered/Not Resolved]
  - Fall [Unknown]
  - Contusion [Unknown]
  - Syncope [Unknown]
  - Wolff-Parkinson-White syndrome [Recovered/Resolved]
  - White blood cell count decreased [Unknown]
  - Syncope [Recovered/Resolved]
  - Presyncope [Recovered/Resolved]
  - Infection [Unknown]
  - Transient ischaemic attack [Unknown]
  - Cerebrovascular accident [Unknown]

NARRATIVE: CASE EVENT DATE: 20200701
